FAERS Safety Report 6793239-1 (Version None)
Quarter: 2010Q2

REPORT INFORMATION
  Report Type: 
  Country: None (occurrence: None)
  Receive Date: 20100624
  Receipt Date: 20091015
  Transmission Date: 20101027
  Serious: Yes (Other)
  Sender: FDA-Public Use
  Company Number: US-MYLANLABS-2009S1016331

PATIENT
  Age: 45 Year
  Sex: Female

DRUGS (16)
  1. CLOZAPINE [Suspect]
     Indication: SCHIZOPHRENIA, PARANOID TYPE
     Route: 048
     Dates: end: 20090909
  2. LORAZEPAM [Concomitant]
  3. CLOMIPRAMINE [Concomitant]
  4. BUSPAR [Concomitant]
  5. BUPROPION HCL [Concomitant]
  6. ACETAMINOPHEN [Concomitant]
  7. MICONAZOLE NITRATE [Concomitant]
     Route: 061
  8. NYSTATIN [Concomitant]
     Dosage: SWISH AND SWALLOW
     Route: 048
  9. FLOVENT [Concomitant]
     Dosage: 2 PUFFS
     Route: 055
  10. CLINDAMYCIN [Concomitant]
  11. CARBIDOPA-LEVODOPA [Concomitant]
     Dosage: 25/100
  12. OMEPRAZOLE [Concomitant]
  13. THEOPHYLLINE [Concomitant]
  14. GEODON [Concomitant]
  15. LACTOBACILLUS ACIDOPHILUS [Concomitant]
  16. FLUCONAZOLE [Concomitant]

REACTIONS (2)
  - GRANULOCYTOPENIA [None]
  - LEUKOPENIA [None]
